FAERS Safety Report 7458917-X (Version None)
Quarter: 2011Q2

REPORT INFORMATION
  Report Type: 
  Country: None (occurrence: None)
  Receive Date: 20110504
  Receipt Date: 20110414
  Transmission Date: 20111010
  Serious: Yes (Death, Hospitalization, Other)
  Sender: FDA-Public Use
  Company Number: US-CELGENEUS-163-21880-10051651

PATIENT
  Sex: Female
  Weight: 57.658 kg

DRUGS (1)
  1. REVLIMID [Suspect]
     Indication: MULTIPLE MYELOMA
     Dosage: 10 MILLIGRAM
     Route: 048
     Dates: start: 20100116

REACTIONS (4)
  - DEATH [None]
  - FAILURE TO THRIVE [None]
  - ASTHENIA [None]
  - PSYCHOTIC DISORDER [None]
